FAERS Safety Report 23481571 (Version 2)
Quarter: 2024Q1

REPORT INFORMATION
  Report Type: Report from Study
  Country: US (occurrence: US)
  Receive Date: 20240205
  Receipt Date: 20240212
  Transmission Date: 20240410
  Serious: Yes (Other)
  Sender: FDA-Public Use
  Company Number: US-GILEAD-2024-0660613

PATIENT
  Sex: Male

DRUGS (1)
  1. AZTREONAM LYSINE [Suspect]
     Active Substance: AZTREONAM LYSINE
     Indication: Pseudomonas infection
     Dosage: 1 VIAL VIA NEBULIZER 3 TIMES DAILY
     Route: 055
     Dates: start: 20230901, end: 20231229

REACTIONS (4)
  - Lower respiratory tract infection bacterial [Unknown]
  - Vomiting [Unknown]
  - Off label use [Recovered/Resolved]
  - Treatment noncompliance [Not Recovered/Not Resolved]
